FAERS Safety Report 7714704-6 (Version None)
Quarter: 2011Q3

REPORT INFORMATION
  Report Type: 
  Country: None (occurrence: None)
  Receive Date: 20110829
  Receipt Date: 20110817
  Transmission Date: 20111222
  Serious: Yes (Hospitalization, Other)
  Sender: FDA-Public Use
  Company Number: JP-JNJFOC-20110410491

PATIENT
  Sex: Female

DRUGS (73)
  1. NEUTROGIN [Suspect]
     Route: 058
     Dates: start: 20100712, end: 20100713
  2. CYCLOPHOSPHAMIDE [Suspect]
     Route: 065
     Dates: start: 20100802, end: 20100802
  3. BIO THREE [Suspect]
     Route: 065
     Dates: start: 20100712, end: 20100718
  4. ASPARA K [Suspect]
     Indication: PRODUCT USED FOR UNKNOWN INDICATION
     Route: 065
     Dates: start: 20100629, end: 20100704
  5. ASPARA K [Suspect]
     Route: 065
     Dates: start: 20100622, end: 20100622
  6. DECADRON [Suspect]
     Indication: PRODUCT USED FOR UNKNOWN INDICATION
     Route: 065
     Dates: start: 20100823, end: 20100824
  7. LOXONIN [Suspect]
     Route: 065
     Dates: start: 20100712, end: 20100716
  8. LEVOGLUTAMIDE [Suspect]
     Route: 065
     Dates: end: 20100618
  9. LEVOGLUTAMIDE [Suspect]
     Route: 065
     Dates: start: 20100712, end: 20100716
  10. ZOFRAN [Suspect]
     Route: 065
     Dates: start: 20100705, end: 20100709
  11. BIO THREE [Suspect]
     Route: 065
     Dates: start: 20100726, end: 20100801
  12. TRASTUZUMAB [Suspect]
     Indication: BREAST CANCER
     Route: 065
     Dates: start: 20100614, end: 20100614
  13. SERENAL [Suspect]
     Route: 065
     Dates: end: 20100621
  14. LOXONIN [Suspect]
     Route: 065
     Dates: start: 20100809, end: 20100827
  15. LEVOGLUTAMIDE [Suspect]
     Indication: PRODUCT USED FOR UNKNOWN INDICATION
     Route: 065
     Dates: start: 20100802, end: 20100806
  16. LEVOFLOXACIN [Suspect]
     Route: 065
     Dates: end: 20100615
  17. LOPERAMIDE HCL [Suspect]
     Indication: PRODUCT USED FOR UNKNOWN INDICATION
     Route: 065
     Dates: start: 20100624, end: 20100628
  18. CYCLOPHOSPHAMIDE [Suspect]
     Route: 065
     Dates: start: 20100614, end: 20100614
  19. ZOFRAN [Suspect]
     Indication: PRODUCT USED FOR UNKNOWN INDICATION
     Route: 065
     Dates: start: 20100802, end: 20100806
  20. BIO THREE [Suspect]
     Route: 065
     Dates: start: 20100802, end: 20100808
  21. BIO THREE [Suspect]
     Route: 065
     Dates: start: 20100621, end: 20100711
  22. DECADRON [Suspect]
     Route: 065
     Dates: start: 20100705, end: 20100706
  23. SODIUM BICARBONATE [Suspect]
     Indication: PRODUCT USED FOR UNKNOWN INDICATION
     Route: 065
     Dates: end: 20100614
  24. TAXOTERE [Suspect]
     Route: 065
     Dates: start: 20100705, end: 20100705
  25. TAXOTERE [Suspect]
     Route: 065
     Dates: start: 20100823, end: 20100823
  26. CYCLOPHOSPHAMIDE [Suspect]
     Route: 065
     Dates: start: 20100705, end: 20100705
  27. NEO-MERCAZOLE TAB [Suspect]
     Indication: PRODUCT USED FOR UNKNOWN INDICATION
     Route: 065
     Dates: end: 20100622
  28. LEVOTHYROXINE SODIUM [Suspect]
     Indication: PRODUCT USED FOR UNKNOWN INDICATION
     Route: 065
     Dates: start: 20100702, end: 20100830
  29. LEVOTHYROXINE SODIUM [Suspect]
     Route: 065
     Dates: end: 20100621
  30. ALFAROL [Suspect]
     Route: 065
     Dates: start: 20100622, end: 20100830
  31. SERENAL [Suspect]
     Indication: PRODUCT USED FOR UNKNOWN INDICATION
     Route: 065
     Dates: start: 20100629, end: 20100716
  32. DECADRON [Suspect]
     Route: 065
     Dates: end: 20100615
  33. LOXONIN [Suspect]
     Route: 065
     Dates: start: 20100830, end: 20100830
  34. LEVOGLUTAMIDE [Suspect]
     Route: 065
     Dates: start: 20100809, end: 20100827
  35. LEVOGLUTAMIDE [Suspect]
     Route: 065
     Dates: start: 20100726, end: 20100730
  36. TAXOTERE [Suspect]
     Route: 065
     Dates: start: 20100614, end: 20100614
  37. LEVOTHYROXINE SODIUM [Suspect]
     Route: 065
     Dates: start: 20100622, end: 20100622
  38. GABAPENTIN [Suspect]
     Indication: PRODUCT USED FOR UNKNOWN INDICATION
     Route: 065
     Dates: start: 20100816, end: 20100822
  39. GABAPENTIN [Suspect]
     Route: 065
     Dates: start: 20100830, end: 20100830
  40. BIO THREE [Suspect]
     Route: 065
     Dates: start: 20100809, end: 20100815
  41. SERENAL [Suspect]
     Route: 065
     Dates: start: 20100802, end: 20100822
  42. ASPARA K [Suspect]
     Route: 065
     Dates: start: 20100616, end: 20100621
  43. DECADRON [Suspect]
     Route: 065
     Dates: start: 20100802, end: 20100803
  44. LOXONIN [Suspect]
     Route: 065
     Dates: end: 20100618
  45. TAXOTERE [Suspect]
     Indication: BREAST CANCER
     Route: 065
     Dates: start: 20100802, end: 20100802
  46. LEVOTHYROXINE SODIUM [Suspect]
     Route: 065
     Dates: start: 20100623, end: 20100628
  47. BISOPROLOL FUMARATE [Suspect]
     Route: 065
     Dates: start: 20100615, end: 20100711
  48. BIO THREE [Suspect]
     Indication: PRODUCT USED FOR UNKNOWN INDICATION
     Route: 065
     Dates: start: 20100823, end: 20100830
  49. TRASTUZUMAB [Suspect]
     Route: 065
     Dates: start: 20100621, end: 20100830
  50. ASPARA K [Suspect]
     Route: 065
     Dates: end: 20100615
  51. LOXONIN [Suspect]
     Route: 065
     Dates: start: 20100726, end: 20100730
  52. LEVOGLUTAMIDE [Suspect]
     Route: 065
     Dates: start: 20100621, end: 20100625
  53. LEVOGLUTAMIDE [Suspect]
     Route: 065
     Dates: start: 20100830, end: 20100830
  54. NICARDIPINE HYDROCHLORIDE [Suspect]
     Indication: PRODUCT USED FOR UNKNOWN INDICATION
     Route: 065
     Dates: start: 20100622, end: 20100628
  55. LEVOFLOXACIN [Suspect]
     Indication: PRODUCT USED FOR UNKNOWN INDICATION
     Route: 065
     Dates: start: 20100830, end: 20100830
  56. LOXONIN [Suspect]
     Route: 065
     Dates: start: 20100802, end: 20100806
  57. LOXONIN [Suspect]
     Route: 065
     Dates: start: 20100705, end: 20100709
  58. LEVOGLUTAMIDE [Suspect]
     Route: 065
     Dates: start: 20100705, end: 20100709
  59. GUAIAZULENE [Suspect]
     Indication: PRODUCT USED FOR UNKNOWN INDICATION
     Route: 065
     Dates: start: 20100624, end: 20100624
  60. LEVOFLOXACIN [Suspect]
     Route: 065
     Dates: start: 20100726, end: 20100728
  61. NEUTROGIN [Suspect]
     Indication: FEBRILE NEUTROPENIA
     Route: 058
     Dates: start: 20100809, end: 20100810
  62. NEUTROGIN [Suspect]
     Route: 058
     Dates: start: 20100621, end: 20100622
  63. NEUTROGIN [Suspect]
     Route: 058
     Dates: start: 20100830, end: 20100831
  64. CYCLOPHOSPHAMIDE [Suspect]
     Indication: BREAST CANCER
     Route: 065
     Dates: start: 20100823, end: 20100823
  65. ALFAROL [Suspect]
     Indication: PRODUCT USED FOR UNKNOWN INDICATION
     Route: 065
     Dates: end: 20100621
  66. BISOPROLOL FUMARATE [Suspect]
     Indication: PRODUCT USED FOR UNKNOWN INDICATION
     Route: 065
     Dates: end: 20100614
  67. MEROPENEM [Suspect]
     Indication: PRODUCT USED FOR UNKNOWN INDICATION
     Route: 065
     Dates: start: 20100622, end: 20100624
  68. CALCIUM LACTATE [Suspect]
     Indication: PRODUCT USED FOR UNKNOWN INDICATION
     Route: 065
     Dates: end: 20100621
  69. CALCIUM LACTATE [Suspect]
     Route: 065
     Dates: start: 20100622, end: 20100628
  70. SERENAL [Suspect]
     Route: 065
     Dates: start: 20100622, end: 20100628
  71. LOXONIN [Suspect]
     Indication: PRODUCT USED FOR UNKNOWN INDICATION
     Route: 065
     Dates: start: 20100621, end: 20100625
  72. VOLTAREN [Suspect]
     Indication: PRODUCT USED FOR UNKNOWN INDICATION
     Route: 065
     Dates: end: 20100614
  73. NATEGLINIDE [Suspect]
     Indication: PRODUCT USED FOR UNKNOWN INDICATION
     Route: 065
     Dates: end: 20100715

REACTIONS (5)
  - FEBRILE NEUTROPENIA [None]
  - RHEUMATOID ARTHRITIS [None]
  - INTERSTITIAL LUNG DISEASE [None]
  - WHITE BLOOD CELL COUNT DECREASED [None]
  - BRONCHITIS [None]
